FAERS Safety Report 4978682-5 (Version None)
Quarter: 2006Q2

REPORT INFORMATION
  Report Type: 
  Country: None (occurrence: None)
  Receive Date: 20060420
  Receipt Date: 20060106
  Transmission Date: 20061013
  Serious: Yes (Hospitalization, Disabling)
  Sender: FDA-Public Use
  Company Number: US-MERCK-0601USA00997

PATIENT
  Age: 60 Year
  Sex: Male
  Weight: 75 kg

DRUGS (1)
  1. VIOXX [Suspect]
     Indication: ARTHRITIS
     Route: 048
     Dates: start: 20020906, end: 20040501

REACTIONS (9)
  - ABDOMINAL PAIN UPPER [None]
  - ARTHROPATHY [None]
  - CARDIAC DISORDER [None]
  - CARDIAC FAILURE CONGESTIVE [None]
  - DYSPEPSIA [None]
  - JOINT INJURY [None]
  - MYOCARDIAL INFARCTION [None]
  - PERIODONTAL INFECTION [None]
  - PROSTATIC DISORDER [None]
